FAERS Safety Report 15948167 (Version 1)
Quarter: 2019Q1

REPORT INFORMATION
  Report Type: Spontaneous
  Country: US (occurrence: US)
  Receive Date: 20190121
  Receipt Date: 20190121
  Transmission Date: 20190417
  Serious: Yes (Hospitalization)
  Sender: FDA-Public Use
  Company Number: None

PATIENT
  Age: 41 Year
  Sex: Female
  Weight: 178.72 kg

DRUGS (1)
  1. NAFCILLIN [Suspect]
     Active Substance: NAFCILLIN\NAFCILLIN SODIUM
     Indication: CELLULITIS
     Route: 042
     Dates: start: 20180901

REACTIONS (3)
  - Swelling [None]
  - Swelling face [None]
  - Rash [None]

NARRATIVE: CASE EVENT DATE: 20180902
